FAERS Safety Report 4551140-8 (Version None)
Quarter: 2005Q1

REPORT INFORMATION
  Report Type: 
  Country: None (occurrence: None)
  Receive Date: 20050113
  Receipt Date: 20050104
  Transmission Date: 20050727
  Serious: Yes (Other)
  Sender: FDA-Public Use
  Company Number: US-JNJFOC-20040401645

PATIENT
  Sex: Male
  Weight: 98.88 kg

DRUGS (9)
  1. REMICADE [Suspect]
     Route: 042
  2. REMICADE [Suspect]
     Route: 042
  3. REMICADE [Suspect]
     Route: 042
  4. REMICADE [Suspect]
     Route: 042
  5. REMICADE [Suspect]
     Route: 042
  6. REMICADE [Suspect]
     Indication: CROHN'S DISEASE
     Route: 042
  7. PREVACID [Concomitant]
  8. CARDURA [Concomitant]
  9. ATENOLOL [Concomitant]
     Indication: HYPERTENSION

REACTIONS (3)
  - LEUKAEMIA [None]
  - MYCOSIS FUNGOIDES [None]
  - T-CELL LYMPHOMA [None]
